FAERS Safety Report 6392107-7 (Version None)
Quarter: 2009Q4

REPORT INFORMATION
  Report Type: 
  Country: None (occurrence: None)
  Receive Date: 20091007
  Receipt Date: 20091001
  Transmission Date: 20100525
  Serious: Yes (Other)
  Sender: FDA-Public Use
  Company Number: AE-MERCK-0910USA00117

PATIENT
  Age: 47 Year
  Sex: Female
  Weight: 58 kg

DRUGS (5)
  1. JANUMET [Suspect]
     Indication: DIABETES MELLITUS
     Route: 048
  2. JANUMET [Suspect]
     Route: 048
  3. LIPITOR [Concomitant]
     Route: 065
  4. FORTZAAR [Concomitant]
     Route: 048
  5. NORVASC [Concomitant]
     Route: 065

REACTIONS (1)
  - SOMNOLENCE [None]
